FAERS Safety Report 10956481 (Version 1)
Quarter: 2015Q1

REPORT INFORMATION
  Report Type: Spontaneous
  Country: CN (occurrence: CN)
  Receive Date: 20150326
  Receipt Date: 20150326
  Transmission Date: 20150721
  Serious: Yes (Other)
  Sender: FDA-Public Use
  Company Number: CN-PFIZER INC-2015096603

PATIENT
  Age: 38 Year
  Sex: Female

DRUGS (4)
  1. METHYLPREDNISOLONE. [Suspect]
     Active Substance: METHYLPREDNISOLONE
  2. CYCLOSPORIN [Suspect]
     Active Substance: CYCLOSPORINE
  3. METHOTREXATE [Suspect]
     Active Substance: METHOTREXATE
  4. MYCOPHENOLATE MOFETIL. [Suspect]
     Active Substance: MYCOPHENOLATE MOFETIL

REACTIONS (1)
  - Immunosuppression [Recovered/Resolved]
